FAERS Safety Report 11135774 (Version 1)
Quarter: 2015Q2

REPORT INFORMATION
  Report Type: Report from Study
  Country: US (occurrence: US)
  Receive Date: 20150526
  Receipt Date: 20150526
  Transmission Date: 20150821
  Serious: Yes (Other)
  Sender: FDA-Public Use
  Company Number: CH-ASTRAZENECA-2015SE46184

PATIENT
  Age: 6 Year
  Sex: Female

DRUGS (2)
  1. DEXAMETHASONE. [Interacting]
     Active Substance: DEXAMETHASONE
     Route: 065
  2. VANDETANIB. [Suspect]
     Active Substance: VANDETANIB
     Indication: ANAPLASTIC OLIGODENDROGLIOMA
     Route: 048

REACTIONS (3)
  - Drug interaction [Unknown]
  - Osteonecrosis [Unknown]
  - Epiphyses premature fusion [Unknown]
